FAERS Safety Report 22836825 (Version 3)
Quarter: 2024Q1

REPORT INFORMATION
  Report Type: Report from Study
  Country: US (occurrence: US)
  Receive Date: 20230818
  Receipt Date: 20240115
  Transmission Date: 20240410
  Serious: Yes (Other)
  Sender: FDA-Public Use
  Company Number: US-ABBVIE-5371106

PATIENT
  Age: 73 Year
  Sex: Female

DRUGS (2)
  1. HUMIRA [Suspect]
     Active Substance: ADALIMUMAB
     Indication: Rheumatoid arthritis
     Dosage: CITRATE FREE/ FORM STRENGTH: 40 MILLIGRAM
     Route: 058
     Dates: start: 20150101
  2. HUMIRA [Suspect]
     Active Substance: ADALIMUMAB
     Dosage: CITRATE FREE/ FORM STRENGTH: 40 MILLIGRAM
     Route: 058
     Dates: start: 20050101

REACTIONS (7)
  - Hepatic cirrhosis [Unknown]
  - Lung disorder [Unknown]
  - Shoulder fracture [Unknown]
  - Fluid retention [Unknown]
  - Fall [Unknown]
  - Renal disorder [Unknown]
  - Fatigue [Unknown]

NARRATIVE: CASE EVENT DATE: 20230714
